FAERS Safety Report 19086753 (Version 3)
Quarter: 2021Q2

REPORT INFORMATION
  Report Type: Report from Study
  Country: HN (occurrence: HN)
  Receive Date: 20210402
  Receipt Date: 20210416
  Transmission Date: 20210717
  Serious: Yes (Life-Threatening, Hospitalization, Other)
  Sender: FDA-Public Use
  Company Number: NVSC2021HN073985

PATIENT
  Sex: Female
  Weight: 52.61 kg

DRUGS (5)
  1. CO?DIOVAN [Suspect]
     Active Substance: HYDROCHLOROTHIAZIDE\VALSARTAN
     Indication: HYPERTENSION
     Dosage: 320/12.5 MG
     Route: 065
  2. EXFORGE [Suspect]
     Active Substance: AMLODIPINE BESYLATE\VALSARTAN
     Dosage: 10/320 MG (STARTED 16 DAYS AGO, 8.00 AM DAILY)
     Route: 065
     Dates: start: 202103
  3. DIOVAN [Suspect]
     Active Substance: VALSARTAN
     Indication: HYPERTENSION
     Dosage: 320 MG (STOPED 17 DAYS AGO)
     Route: 065
  4. DIOVAN [Suspect]
     Active Substance: VALSARTAN
     Dosage: HALF TABLET , QD
     Route: 065
     Dates: end: 202103
  5. EXFORGE [Suspect]
     Active Substance: AMLODIPINE BESYLATE\VALSARTAN
     Indication: HYPERTENSION
     Dosage: 10/160 MG
     Route: 065

REACTIONS (10)
  - Gastric ulcer [Recovered/Resolved]
  - General physical health deterioration [Unknown]
  - Dyspepsia [Unknown]
  - Vomiting [Recovered/Resolved]
  - Gastric disorder [Recovered/Resolved]
  - Gastric haemorrhage [Recovered/Resolved]
  - Heart rate increased [Recovered/Resolved]
  - Visual impairment [Recovered/Resolved]
  - Diarrhoea [Recovered/Resolved]
  - Incorrect dose administered [Unknown]

NARRATIVE: CASE EVENT DATE: 2018
